FAERS Safety Report 8242727-X (Version None)
Quarter: 2012Q1

REPORT INFORMATION
  Report Type: 
  Country: None (occurrence: None)
  Receive Date: 20120329
  Receipt Date: 20120320
  Transmission Date: 20120608
  Serious: Yes (Hospitalization, Disabling)
  Sender: FDA-Public Use
  Company Number: US-BAYER-2011-084202

PATIENT
  Age: 29 Year
  Sex: Female
  Weight: 53.968 kg

DRUGS (7)
  1. DILANTIN [Concomitant]
  2. KLONOPIN [Concomitant]
     Indication: ANXIETY
  3. IBUPROFEN (ADVIL) [Concomitant]
     Dosage: AS NEEDED, UNK
     Route: 048
     Dates: start: 20000101
  4. IBUPROFEN [Concomitant]
  5. YAZ [Suspect]
     Dosage: UNK
     Dates: start: 20090101, end: 20100101
  6. ATIVAN [Concomitant]
  7. RITALIN [Concomitant]
     Indication: DISTURBANCE IN ATTENTION

REACTIONS (32)
  - HYPOAESTHESIA [None]
  - SLEEP DISORDER [None]
  - HEADACHE [None]
  - BLINDNESS [None]
  - ANHEDONIA [None]
  - GAIT DISTURBANCE [None]
  - MEMORY IMPAIRMENT [None]
  - APHASIA [None]
  - IMPULSIVE BEHAVIOUR [None]
  - DEPRESSION [None]
  - EPILEPSY [None]
  - ANXIETY [None]
  - PARAESTHESIA [None]
  - CONFUSIONAL STATE [None]
  - CHEST PAIN [None]
  - VERTIGO [None]
  - FEAR [None]
  - ARTHRALGIA [None]
  - CAVERNOUS SINUS THROMBOSIS [None]
  - ENCEPHALOPATHY [None]
  - DIZZINESS [None]
  - VISION BLURRED [None]
  - MUSCLE SPASMS [None]
  - HAEMORRHAGE INTRACRANIAL [None]
  - MUSCULAR WEAKNESS [None]
  - BURNING SENSATION [None]
  - INJURY [None]
  - FATIGUE [None]
  - CONVULSION [None]
  - AMNESIA [None]
  - DISTURBANCE IN ATTENTION [None]
  - EXERCISE TOLERANCE DECREASED [None]
